FAERS Safety Report 11069582 (Version 4)
Quarter: 2016Q1

REPORT INFORMATION
  Report Type: Spontaneous
  Country: CA (occurrence: CA)
  Receive Date: 20150427
  Receipt Date: 20160122
  Transmission Date: 20160525
  Serious: Yes (Other)
  Sender: FDA-Public Use
  Company Number: CA-ROCHE-1567508

PATIENT
  Age: 54 Year
  Sex: Female

DRUGS (11)
  1. PERJETA [Suspect]
     Active Substance: PERTUZUMAB
     Indication: HER-2 POSITIVE BREAST CANCER
     Dosage: 14ML VIAL - CONCENTRATE SOL; SOLUTION INTRAVENOUS
     Route: 042
  2. CARBOPLATIN. [Concomitant]
     Active Substance: CARBOPLATIN
     Route: 042
  3. HERCEPTIN [Suspect]
     Active Substance: TRASTUZUMAB
     Indication: PRODUCT USED FOR UNKNOWN INDICATION
     Dosage: VIALS; POWDER FOR SOLUTION INTRAVENOUS
     Route: 042
  4. XELODA [Suspect]
     Active Substance: CAPECITABINE
     Indication: PRODUCT USED FOR UNKNOWN INDICATION
     Dosage: THERAPY DURATION: 2 YEARS
     Route: 065
  5. LEVOTHYROXINE. [Concomitant]
     Active Substance: LEVOTHYROXINE
  6. AMOXICILLIN. [Concomitant]
     Active Substance: AMOXICILLIN
  7. TYKERB [Concomitant]
     Active Substance: LAPATINIB DITOSYLATE
  8. KADCYLA [Suspect]
     Active Substance: ADO-TRASTUZUMAB EMTANSINE
     Indication: HER-2 POSITIVE BREAST CANCER
     Route: 042
  9. PERJETA [Suspect]
     Active Substance: PERTUZUMAB
     Dosage: 14ML VIAL - CONCENTRATE SOL; SOLUTION INTRAVENOUS
     Route: 065
  10. TAXOTERE [Suspect]
     Active Substance: DOCETAXEL
     Indication: PRODUCT USED FOR UNKNOWN INDICATION
     Route: 042
  11. DECADRON [Concomitant]
     Active Substance: DEXAMETHASONE

REACTIONS (19)
  - Hypoaesthesia [Unknown]
  - Nasopharyngitis [Unknown]
  - Pruritus [Unknown]
  - Sensory disturbance [Unknown]
  - Tooth disorder [Unknown]
  - Weight increased [Unknown]
  - Hypertension [Unknown]
  - Malignant neoplasm progression [Unknown]
  - Laboratory test abnormal [Unknown]
  - Oropharyngeal pain [Unknown]
  - Hypotension [Unknown]
  - Productive cough [Unknown]
  - Abdominal pain [Unknown]
  - Metastases to liver [Unknown]
  - Platelet count decreased [Unknown]
  - Procedural site reaction [Unknown]
  - Paraesthesia [Unknown]
  - Nail bed infection [Unknown]
  - Rhinorrhoea [Unknown]
